FAERS Safety Report 22586905 (Version 1)
Quarter: 2023Q2

REPORT INFORMATION
  Report Type: Spontaneous
  Country: IE (occurrence: IE)
  Receive Date: 20230611
  Receipt Date: 20230611
  Transmission Date: 20230722
  Serious: Yes (Other)
  Sender: FDA-Public Use
  Company Number: IE-STRIDES ARCOLAB LIMITED-2023SP009241

PATIENT
  Sex: Female

DRUGS (1)
  1. OMEPRAZOLE [Suspect]
     Active Substance: OMEPRAZOLE
     Indication: Gastrooesophageal reflux disease
     Dosage: 20 MILLIGRAM; PER DAY; FROM 30 WEEKS GESTATION TO BIRTH
     Route: 065

REACTIONS (2)
  - Zinc deficiency [Unknown]
  - Maternal exposure during pregnancy [Unknown]
